FAERS Safety Report 6786238-7 (Version None)
Quarter: 2010Q2

REPORT INFORMATION
  Report Type: 
  Country: None (occurrence: None)
  Receive Date: 20100623
  Receipt Date: 20100616
  Transmission Date: 20101027
  Serious: Yes (Death, Hospitalization)
  Sender: FDA-Public Use
  Company Number: FR-ROCHE-673338

PATIENT
  Sex: Male
  Weight: 80 kg

DRUGS (13)
  1. BEVACIZUMAB [Suspect]
     Indication: NON-SMALL CELL LUNG CANCER
     Dosage: LAST DOSE PRIOR TO SAE ON 01 DECEMBER 09, FORM: VIAL
     Route: 042
     Dates: start: 20091020, end: 20091204
  2. PEMETREXED [Suspect]
     Indication: NON-SMALL CELL LUNG CANCER
     Dosage: LAST DOSE PRIOR TO SAE ON 01 DEC 09, FORM: VIAL
     Route: 042
     Dates: start: 20091020, end: 20091204
  3. CISPLATIN [Suspect]
     Indication: NON-SMALL CELL LUNG CANCER
     Dosage: LAST DOSE PRIOR TO SAE ON 01 DEC 09, FORM: VIAL
     Route: 042
     Dates: start: 20091020, end: 20091204
  4. VERAPAMIL [Concomitant]
     Dates: start: 20090929
  5. ATORVASTATIN CALCIUM [Concomitant]
     Dates: start: 20090928
  6. ESOMEPRAZOLE [Concomitant]
     Dates: start: 20090928
  7. EZETIMIBE [Concomitant]
     Dates: start: 20080928
  8. GLICLAZIDE [Concomitant]
     Dates: start: 20090928
  9. BIGUANIDES [Concomitant]
     Dates: start: 20091001
  10. NAPROXEN [Concomitant]
  11. LATANOPROST [Concomitant]
     Dosage: TDD REPORTED AS GTTS
  12. COLLYRIUM [Concomitant]
     Dosage: REFRESH COLLYRIUM. TDD REPORTED AS GTTS.
  13. CARMELLOSE [Concomitant]

REACTIONS (7)
  - ACUTE RESPIRATORY DISTRESS SYNDROME [None]
  - DIALYSIS [None]
  - FEBRILE BONE MARROW APLASIA [None]
  - PSEUDOMONAL SEPSIS [None]
  - RENAL FAILURE ACUTE [None]
  - SEPTIC SHOCK [None]
  - STREPTOCOCCAL SEPSIS [None]
